FAERS Safety Report 7384942-3 (Version None)
Quarter: 2011Q1

REPORT INFORMATION
  Report Type: 
  Country: None (occurrence: None)
  Receive Date: 20110330
  Receipt Date: 20110317
  Transmission Date: 20110831
  Serious: Yes (Other)
  Sender: FDA-Public Use
  Company Number: PHHY2011RU22239

PATIENT
  Age: 53 Year
  Sex: Male

DRUGS (1)
  1. TASIGNA [Suspect]
     Indication: CHRONIC MYELOID LEUKAEMIA
     Dosage: 800 MG, UNK

REACTIONS (6)
  - CHEST PAIN [None]
  - BODY TEMPERATURE INCREASED [None]
  - PALLOR [None]
  - VOMITING [None]
  - PULSE ABNORMAL [None]
  - BONE PAIN [None]
